FAERS Safety Report 5136353-9 (Version None)
Quarter: 2006Q4

REPORT INFORMATION
  Report Type: 
  Country: None (occurrence: None)
  Receive Date: 20061027
  Receipt Date: 20060613
  Transmission Date: 20070319
  Serious: Yes (Other)
  Sender: FDA-Public Use
  Company Number: 2006AP02772

PATIENT
  Age: 51 Year
  Sex: Female

DRUGS (8)
  1. LOSEC [Suspect]
     Indication: BARRETT'S OESOPHAGUS
     Route: 048
     Dates: start: 20010101, end: 20030601
  2. LOSEC [Suspect]
     Route: 048
     Dates: start: 20030601, end: 20050101
  3. NEXIUM [Suspect]
     Indication: BARRETT'S OESOPHAGUS
     Route: 048
  4. CALCIUM SUPPLEMENT [Concomitant]
  5. TELMISARTAN [Concomitant]
  6. RANITIDINE [Concomitant]
     Indication: REFLUX OESOPHAGITIS
  7. NIFEDIPINE [Concomitant]
     Dates: start: 20020101
  8. SALBUTAMOL [Concomitant]
     Dates: start: 20010101

REACTIONS (3)
  - HYPOCALCAEMIA [None]
  - HYPOMAGNESAEMIA [None]
  - HYPOPARATHYROIDISM [None]
